FAERS Safety Report 15660389 (Version 1)
Quarter: 2018Q4

REPORT INFORMATION
  Report Type: Spontaneous
  Country: AU (occurrence: AU)
  Receive Date: 20181127
  Receipt Date: 20181127
  Transmission Date: 20190205
  Serious: Yes (Hospitalization, Other)
  Sender: FDA-Public Use
  Company Number: AU-GW PHARMA-201801AUGW0011

PATIENT

DRUGS (17)
  1. LEVETIRACETAM. [Concomitant]
     Active Substance: LEVETIRACETAM
     Indication: RETT SYNDROME
     Dosage: 500 MILLIGRAM, BID
     Route: 065
  2. SALBUTAMOL [Concomitant]
     Active Substance: ALBUTEROL
     Indication: PRODUCT USE IN UNAPPROVED INDICATION
     Dosage: 2.5 MILLIGRAM, QD (NEB PRIOR TO PHYSIO)
  3. BIOTIN [Concomitant]
     Active Substance: BIOTIN
     Indication: PRODUCT USED FOR UNKNOWN INDICATION
     Dosage: 15 MILLIGRAM, BID
     Route: 065
  4. VITAMIN D [COLECALCIFEROL] [Concomitant]
     Indication: PRODUCT USED FOR UNKNOWN INDICATION
     Dosage: 25 MICROGRAM, QD
     Route: 065
  5. FISH OIL [Concomitant]
     Active Substance: FISH OIL
     Indication: PRODUCT USED FOR UNKNOWN INDICATION
  6. EPILIM [Suspect]
     Active Substance: VALPROATE SODIUM
     Indication: RETT SYNDROME
     Dosage: 200 MILIGRAM MANE, 280 MILIGRAM NOCTE
     Route: 065
  7. CLOBAZAM. [Suspect]
     Active Substance: CLOBAZAM
     Indication: RETT SYNDROME
     Dosage: 12.5 MILLIGRAM, QD (5 MILIGRAM MANE AND 7.5 MILIGRAM NOCTE)
     Route: 065
     Dates: start: 2010
  8. EPIDIOLEX [Suspect]
     Active Substance: CANNABIDIOL
     Indication: RETT SYNDROME
     Dosage: 700 MILLIGRAM, QD (25 MILIGRAM/KILOGRAM)
     Route: 048
     Dates: start: 20171129, end: 20180323
  9. EPIDIOLEX [Suspect]
     Active Substance: CANNABIDIOL
     Dosage: 600 MILLIGRAM, QD (24 MILIGRAM/KILOGRAM)
     Route: 048
     Dates: start: 20180323
  10. CALCIUM [Concomitant]
     Active Substance: CALCIUM
     Indication: PRODUCT USED FOR UNKNOWN INDICATION
     Dosage: 600 MILLIGRAM, QD
     Route: 065
  11. CLOBAZAM. [Suspect]
     Active Substance: CLOBAZAM
     Dosage: 12.5 MILLIGRAM, QD
     Route: 048
     Dates: start: 2010
  12. ZONISAMIDE. [Concomitant]
     Active Substance: ZONISAMIDE
     Indication: RETT SYNDROME
     Dosage: 50 MILLIGRAM, BID
     Route: 065
  13. PAMIDRONATE DISODIUM. [Concomitant]
     Active Substance: PAMIDRONATE DISODIUM
     Indication: OSTEOPENIA
     Dosage: EVERY 3 MONTHS
  14. AZITHROMYCIN ANHYDROUS. [Concomitant]
     Active Substance: AZITHROMYCIN ANHYDROUS
     Indication: LOWER RESPIRATORY TRACT INFECTION
     Dosage: 240 MILLIGRAM, PRN (ON MON, WED, FRI)
     Route: 065
  15. OMEPRAZOLE. [Concomitant]
     Active Substance: OMEPRAZOLE
     Indication: PRODUCT USED FOR UNKNOWN INDICATION
     Dosage: 10 MILLIGRAM, BID
     Route: 065
  16. LANSOPRAZOLE. [Concomitant]
     Active Substance: LANSOPRAZOLE
     Indication: PRODUCT USED FOR UNKNOWN INDICATION
     Dosage: 15 MILLIGRAM, BID
     Route: 065
  17. HYPERTONIC SALINE SOLUTION [Concomitant]
     Active Substance: SODIUM CHLORIDE
     Indication: PRODUCT USED FOR UNKNOWN INDICATION
     Dosage: UNK (NEB PRIOR TO PHYSIO)

REACTIONS (4)
  - Somnolence [Recovered/Resolved]
  - Lower respiratory tract infection [Recovered/Resolved]
  - Gamma-glutamyltransferase increased [Recovering/Resolving]
  - Pneumonia [Recovered/Resolved]

NARRATIVE: CASE EVENT DATE: 20180103
